FAERS Safety Report 24550541 (Version 1)
Quarter: 2024Q4

REPORT INFORMATION
  Report Type: Report from Study
  Country: JP (occurrence: JP)
  Receive Date: 20241025
  Receipt Date: 20241025
  Transmission Date: 20250115
  Serious: Yes (Death, Hospitalization, Other)
  Sender: JAZZ
  Company Number: JP-JAZZ PHARMACEUTICALS-2023-JP-023272

PATIENT
  Age: 24 Year
  Sex: Male
  Weight: 37.4 kg

DRUGS (1)
  1. DEFITELIO [Suspect]
     Active Substance: DEFIBROTIDE SODIUM
     Indication: Venoocclusive liver disease
     Dosage: 21.6 MILLIGRAM/KILOGRAM, QD
     Route: 042
     Dates: start: 20230106, end: 20230127

REACTIONS (3)
  - Lymphoma [Fatal]
  - Combined immunodeficiency [Fatal]
  - Mouth haemorrhage [Not Recovered/Not Resolved]

NARRATIVE: CASE EVENT DATE: 20230108
